FAERS Safety Report 5037198-0 (Version None)
Quarter: 2006Q2

REPORT INFORMATION
  Report Type: 
  Country: None (occurrence: None)
  Receive Date: 20060623
  Receipt Date: 20060607
  Transmission Date: 20061013
  Serious: Yes (Other)
  Sender: FDA-Public Use
  Company Number: MY200605003882

PATIENT
  Age: 8 Year
  Sex: Male
  Weight: 40 kg

DRUGS (1)
  1. STRATTERA [Suspect]
     Indication: ATTENTION DEFICIT/HYPERACTIVITY DISORDER
     Dosage: 40 MG, DAILY, (1/D), ORAL
     Route: 048
     Dates: start: 20060104

REACTIONS (4)
  - AGGRESSION [None]
  - AGITATION [None]
  - CRYING [None]
  - MOOD SWINGS [None]
